FAERS Safety Report 7038462-6 (Version None)
Quarter: 2010Q4

REPORT INFORMATION
  Report Type: 
  Country: None (occurrence: None)
  Receive Date: 20101011
  Receipt Date: 20100506
  Transmission Date: 20110411
  Serious: No
  Sender: FDA-Public Use
  Company Number: US-PFIZER INC-2006143190

PATIENT
  Sex: Female
  Weight: 43.09 kg

DRUGS (3)
  1. NEURONTIN [Suspect]
     Indication: MOOD ALTERED
     Dosage: 800 MG, 2X/DAY
  2. NEURONTIN [Suspect]
     Indication: BACK PAIN
  3. METHADONE [Suspect]
     Indication: PAIN
     Dosage: UNK

REACTIONS (3)
  - BALANCE DISORDER [None]
  - FATIGUE [None]
  - SEDATION [None]
